FAERS Safety Report 23872120 (Version 2)
Quarter: 2024Q2

REPORT INFORMATION
  Report Type: Spontaneous
  Country: IT (occurrence: IT)
  Receive Date: 20240520
  Receipt Date: 20240522
  Transmission Date: 20240716
  Serious: Yes (Other)
  Sender: FDA-Public Use
  Company Number: None

PATIENT
  Age: 73 Year
  Sex: Male
  Weight: 73 kg

DRUGS (5)
  1. PEMETREXED [Suspect]
     Active Substance: PEMETREXED
     Indication: Lung adenocarcinoma stage IV
     Dosage: PEMETREXED: 580MG OGNI 21 GIORNI
     Route: 042
     Dates: start: 20201223, end: 20201223
  2. PEMETREXED [Suspect]
     Active Substance: PEMETREXED
     Dosage: 570 MG
     Route: 042
     Dates: start: 20210203, end: 20210203
  3. PEMETREXED [Suspect]
     Active Substance: PEMETREXED
     Dosage: 580 MG OGNI 21 GIORNI, RICHIESTO MA SCONOSCIUTO
     Route: 042
     Dates: start: 20210114, end: 20210114
  4. PEMBROLIZUMAB [Suspect]
     Active Substance: PEMBROLIZUMAB
     Indication: Lung adenocarcinoma stage IV
     Dosage: PEMBROLIZUMAB: 200MG OGNI 21 GIORNI
     Route: 042
     Dates: start: 20201223, end: 20201223
  5. PEMBROLIZUMAB [Suspect]
     Active Substance: PEMBROLIZUMAB
     Dosage: 200 MG OGNI 21 GIORNI RICHIESTO MA SCONOSCIUTO
     Route: 042
     Dates: start: 20210114, end: 20210114

REACTIONS (6)
  - Hypothyroidism [Recovering/Resolving]
  - Febrile neutropenia [Unknown]
  - Thrombocytopenia [Not Recovered/Not Resolved]
  - Anaemia [Not Recovered/Not Resolved]
  - Pyrexia [Not Recovered/Not Resolved]
  - Oedema peripheral [Recovering/Resolving]

NARRATIVE: CASE EVENT DATE: 20210110
